FAERS Safety Report 17342132 (Version 5)
Quarter: 2022Q1

REPORT INFORMATION
  Report Type: Spontaneous
  Country: US (occurrence: US)
  Receive Date: 20200129
  Receipt Date: 20220208
  Transmission Date: 20220423
  Serious: Yes (Hospitalization)
  Sender: FDA-Public Use
  Company Number: US-SA-2020SA021207

PATIENT
  Age: 24 Year
  Sex: Female

DRUGS (4)
  1. DUPIXENT [Suspect]
     Active Substance: DUPILUMAB
     Indication: Asthma
     Dosage: 300 MG, QOW
     Route: 058
     Dates: start: 201911
  2. PANCREATIN [Suspect]
     Active Substance: PANCRELIPASE
  3. PANCREATIN [Suspect]
     Active Substance: PANCRELIPASE
     Dosage: REDUCED DOSE
  4. TRIKAFTA [Suspect]
     Active Substance: ELEXACAFTOR\IVACAFTOR\TEZACAFTOR
     Dosage: UNK
     Dates: start: 20200125

REACTIONS (8)
  - Asthma [Unknown]
  - Chest discomfort [Unknown]
  - Abdominal pain [Recovered/Resolved]
  - Productive cough [Unknown]
  - Secretion discharge [Unknown]
  - Weight increased [Unknown]
  - Constipation [Recovering/Resolving]
  - Exposure during pregnancy [Unknown]

NARRATIVE: CASE EVENT DATE: 20200101
